FAERS Safety Report 5752001-9 (Version None)
Quarter: 2008Q2

REPORT INFORMATION
  Report Type: 
  Country: None (occurrence: None)
  Receive Date: 20080527
  Receipt Date: 20080514
  Transmission Date: 20081010
  Serious: Yes (Hospitalization)
  Sender: FDA-Public Use
  Company Number: 2008SP000441

PATIENT
  Age: 87 Year
  Sex: Female

DRUGS (10)
  1. XOPENEX [Suspect]
     Indication: ASTHMA
     Dosage: 1.25 MG/MOL; INHALATION
     Route: 055
     Dates: start: 20070101, end: 20080225
  2. DIGOXIN [Concomitant]
  3. HYZAAR [Concomitant]
  4. TRICOR               /004993001/ [Concomitant]
  5. COUMADIN [Concomitant]
  6. MUCINEX [Concomitant]
  7. HALLS [Concomitant]
  8. ACETYLSCYSTEINE [Concomitant]
  9. MUCINEX DM [Concomitant]
  10. SUCRETS          /00581401/ [Concomitant]

REACTIONS (8)
  - CONVULSION [None]
  - CYSTITIS [None]
  - DIARRHOEA [None]
  - DRUG INEFFECTIVE [None]
  - GASTROINTESTINAL INFECTION [None]
  - HIP FRACTURE [None]
  - PNEUMONIA [None]
  - PRURITUS [None]
